FAERS Safety Report 22652693 (Version 1)
Quarter: 2023Q2

REPORT INFORMATION
  Report Type: Report from Study
  Country: US (occurrence: US)
  Receive Date: 20230629
  Receipt Date: 20230629
  Transmission Date: 20230722
  Serious: Yes (Other)
  Sender: FDA-Public Use
  Company Number: US-ABBVIE-4288113

PATIENT
  Age: 75 Year
  Sex: Male

DRUGS (14)
  1. HUMIRA [Suspect]
     Active Substance: ADALIMUMAB
     Indication: Rheumatoid arthritis
     Dosage: CITRATE FREE?FORM STRENGTH: 40 MILLIGRAM
     Route: 058
     Dates: start: 20230307
  2. HUMIRA [Suspect]
     Active Substance: ADALIMUMAB
     Dosage: CITRATE FREE?FORM STRENGTH: 40 MILLIGRAM
     Route: 058
     Dates: start: 20221005, end: 20230220
  3. HUMIRA [Suspect]
     Active Substance: ADALIMUMAB
     Dosage: CITRATE FREE?DRUG END DATE: SEP 2022?FORM STRENGTH: 40 MILLIGRAM
     Route: 058
     Dates: start: 20220911
  4. HUMIRA [Suspect]
     Active Substance: ADALIMUMAB
     Dosage: FORM STRENGTH: 40 MILLIGRAM
     Route: 058
  5. LISINOPRIL [Concomitant]
     Active Substance: LISINOPRIL
     Indication: Product used for unknown indication
     Dosage: FORM STRENGTH: 20 MG
     Route: 065
  6. DESONIDE [Concomitant]
     Active Substance: DESONIDE
     Indication: Product used for unknown indication
     Dosage: FORM STRENGTH: 0.05 PERCENTAGE
     Route: 061
  7. PREDNISONE [Concomitant]
     Active Substance: PREDNISONE
     Indication: Product used for unknown indication
     Dosage: FORM STRENGTH: 5 MG
  8. AMLODIPINE [Concomitant]
     Active Substance: AMLODIPINE BESYLATE
     Indication: Product used for unknown indication
     Dosage: FORM STRENGTH: 10 MG
     Route: 065
  9. FLUTICASONE [Concomitant]
     Active Substance: FLUTICASONE
     Indication: Product used for unknown indication
     Dosage: FORM STRENGTH: 50 MG
     Route: 065
  10. FLUOROURACIL [Concomitant]
     Active Substance: FLUOROURACIL
     Indication: Product used for unknown indication
     Dosage: FORM STRENGTH: 5 PERCENT
     Route: 061
  11. TRAZODONE [Concomitant]
     Active Substance: TRAZODONE HYDROCHLORIDE
     Indication: Product used for unknown indication
     Dosage: FORM STRENGTH: 150 MILLIGRAM
  12. CEPHALEXIN [Concomitant]
     Active Substance: CEPHALEXIN
     Indication: Product used for unknown indication
     Dosage: TIME INTERVAL: 0.33333333 DAYS: FORM STRENGTH: 500 MILLIGRAM
     Route: 048
  13. dilezem HCL [Concomitant]
     Indication: Product used for unknown indication
     Route: 065
  14. 0.01 % Fluocinolone acetonide [Concomitant]
     Indication: Product used for unknown indication
     Dosage: FORM STRENGTH: 0.01 PERCENT
     Route: 061

REACTIONS (15)
  - Squamous cell carcinoma of skin [Not Recovered/Not Resolved]
  - Cough [Recovering/Resolving]
  - Skin mass [Unknown]
  - Squamous cell carcinoma of skin [Unknown]
  - Basal cell carcinoma [Not Recovered/Not Resolved]
  - Unevaluable event [Recovering/Resolving]
  - Neoplasm skin [Unknown]
  - Basal cell carcinoma [Unknown]
  - Squamous cell carcinoma [Unknown]
  - Squamous cell carcinoma of skin [Unknown]
  - Scar [Unknown]
  - Neoplasm skin [Unknown]
  - Post procedural complication [Unknown]
  - Erythema [Unknown]
  - Basal cell carcinoma [Unknown]

NARRATIVE: CASE EVENT DATE: 20221111
